FAERS Safety Report 4490940-X (Version None)
Quarter: 2004Q4

REPORT INFORMATION
  Report Type: 
  Country: None (occurrence: None)
  Receive Date: 20041027
  Receipt Date: 20041011
  Transmission Date: 20050328
  Serious: Yes (Death)
  Sender: FDA-Public Use
  Company Number: L04-SWE-06630-31

PATIENT
  Age: 60 Year
  Sex: Female

DRUGS (7)
  1. CITALOPRAM [Suspect]
  2. AMITRIPTYLINE HCL [Concomitant]
  3. PROPIOMAZINE [Concomitant]
  4. DIHYDROPROPIOMAZINE [Concomitant]
  5. DIAZEPAM [Concomitant]
  6. NORDIAZEPAM [Concomitant]
  7. ZOPICLONE [Concomitant]

REACTIONS (2)
  - COMPLETED SUICIDE [None]
  - DROWNING [None]
